FAERS Safety Report 7747582-X (Version None)
Quarter: 2011Q3

REPORT INFORMATION
  Report Type: 
  Country: None (occurrence: None)
  Receive Date: 20110913
  Receipt Date: 20110831
  Transmission Date: 20111222
  Serious: Yes (Hospitalization)
  Sender: FDA-Public Use
  Company Number: DE-ELI_LILLY_AND_COMPANY-DE201107004848

PATIENT
  Sex: Female

DRUGS (4)
  1. GABAPENTIN [Concomitant]
     Dosage: 100 MG, TID
     Dates: start: 20090301
  2. MELPERON [Concomitant]
     Dosage: UNK, PRN
     Dates: start: 20090301, end: 20090601
  3. GABAPENTIN [Concomitant]
     Dosage: 200 MG, TID
     Dates: start: 20080101
  4. CYMBALTA [Suspect]
     Indication: DEPRESSION
     Dosage: 60 MG, UNK
     Dates: start: 20090301, end: 20101001

REACTIONS (6)
  - TREMOR [None]
  - HEAD TITUBATION [None]
  - CHILLS [None]
  - ALOPECIA [None]
  - WEIGHT DECREASED [None]
  - SOMNOLENCE [None]
